FAERS Safety Report 14339206 (Version 2)
Quarter: 2018Q1

REPORT INFORMATION
  Report Type: Spontaneous
  Country: FI (occurrence: FI)
  Receive Date: 20171230
  Receipt Date: 20180208
  Transmission Date: 20180509
  Serious: Yes (Hospitalization, Other)
  Sender: FDA-Public Use
  Company Number: FI-AUROBINDO-AUR-APL-2017-47381

PATIENT
  Age: 30 Year
  Sex: Male

DRUGS (8)
  1. OLANZAPINE. [Suspect]
     Active Substance: OLANZAPINE
     Indication: BIPOLAR DISORDER
     Dosage: 15 MG, AT BED TIME
     Route: 065
  2. LITHIUM. [Interacting]
     Active Substance: LITHIUM
     Indication: BIPOLAR DISORDER
     Dosage: 1050 MG, ONCE A DAY
     Route: 065
  3. OLANZAPINE. [Suspect]
     Active Substance: OLANZAPINE
     Dosage: 15 MG, AT BED TIME
     Route: 065
  4. PANACO [Suspect]
     Active Substance: ACETAMINOPHEN\CODEINE PHOSPHATE
     Dosage: UNK ()
  5. PANACO [Suspect]
     Active Substance: ACETAMINOPHEN\CODEINE PHOSPHATE
     Dosage: UNK ()
  6. OLANZAPINE. [Suspect]
     Active Substance: OLANZAPINE
     Dosage: ()
  7. PANACO [Suspect]
     Active Substance: ACETAMINOPHEN\CODEINE PHOSPHATE
     Indication: BACK PAIN
     Dosage: UNK
     Route: 065
  8. LITHIUM. [Interacting]
     Active Substance: LITHIUM
     Indication: BIPOLAR I DISORDER
     Dosage: ()

REACTIONS (9)
  - Drug interaction [Unknown]
  - Intervertebral disc protrusion [Unknown]
  - Alcohol use [None]
  - Product prescribing issue [None]
  - Mania [Unknown]
  - Weight increased [Unknown]
  - Bipolar disorder [None]
  - Increased appetite [Unknown]
  - Intercepted drug prescribing error [Unknown]

NARRATIVE: CASE EVENT DATE: 201705
